FAERS Safety Report 7408291-X (Version None)
Quarter: 2011Q2

REPORT INFORMATION
  Report Type: 
  Country: None (occurrence: None)
  Receive Date: 20110412
  Receipt Date: 20110331
  Transmission Date: 20111010
  Serious: Yes (Hospitalization, Other)
  Sender: FDA-Public Use
  Company Number: US-JNJFOC-20101006617

PATIENT
  Sex: Female
  Weight: 53.52 kg

DRUGS (47)
  1. DURAGESIC [Suspect]
     Route: 062
  2. OMEPRAZOLE [Concomitant]
     Route: 065
  3. WELLBUTRIN [Concomitant]
     Route: 048
  4. FLUTICASONE PROPIONATE [Concomitant]
     Dosage: 2 SPRAYS EACH NOSTRILS
     Route: 045
  5. THYROID TAB [Concomitant]
     Route: 048
  6. DURAGESIC [Suspect]
     Route: 062
  7. DURAGESIC [Suspect]
     Indication: PAIN
     Route: 062
  8. DURAGESIC [Suspect]
     Route: 062
  9. DURAGESIC [Suspect]
     Route: 062
  10. LEVOTHYROXINE SODIUM [Suspect]
     Indication: GOITRE
     Route: 065
  11. ATROVENT [Concomitant]
     Dosage: 2 SPRAYS IN EACH NOSTRIL
     Route: 045
  12. DURAGESIC [Suspect]
     Route: 062
  13. DURAGESIC [Suspect]
     Route: 062
  14. DURAGESIC [Suspect]
     Route: 062
  15. DYE (CONTRAST MEDIA) [Suspect]
     Indication: ILL-DEFINED DISORDER
     Route: 065
  16. ATIVAN [Concomitant]
     Route: 048
  17. DURAGESIC [Suspect]
     Dosage: NDC# 50458-094-05
     Route: 062
  18. CYMBALTA [Concomitant]
     Route: 048
  19. NORCO [Concomitant]
     Dosage: 1-2 4 TIMES
     Route: 048
  20. ATIVAN [Concomitant]
     Route: 048
  21. LEVOTHYROXINE SODIUM [Concomitant]
     Route: 048
  22. DURAGESIC [Suspect]
     Route: 062
  23. DURAGESIC [Suspect]
     Route: 062
  24. DURAGESIC [Suspect]
     Route: 062
  25. DURAGESIC [Suspect]
     Dosage: NDC# 50458-094-05
     Route: 062
  26. DURAGESIC [Suspect]
     Route: 062
  27. ACETAMINOPHEN/HYDROCODONE [Concomitant]
     Indication: PAIN
     Dosage: 325/10 MG 1 TABLET EVERY 4 HOURS AS NEEDED
     Route: 065
  28. NORVASC [Concomitant]
     Route: 065
  29. DOCUSATE [Concomitant]
     Route: 065
  30. ESTRATEST H.S. [Concomitant]
     Dosage: 0.625-1.25
     Route: 048
  31. LEVOTHYROXINE SODIUM [Concomitant]
     Route: 048
  32. LEVOXYL [Concomitant]
     Route: 048
  33. DURAGESIC [Suspect]
     Route: 062
  34. DURAGESIC [Suspect]
     Route: 062
  35. DURAGESIC [Suspect]
     Route: 062
  36. ALBUTEROL SULFATE AND IPRATROPIUM BROMIDE [Concomitant]
     Indication: DYSPNOEA
     Dosage: NEBULIZER EVERY 4 HOURS AS NEEDED
     Route: 065
  37. POTASSIUM CHLORIDE [Concomitant]
     Route: 065
  38. NORCO [Concomitant]
     Indication: BREAKTHROUGH PAIN
     Dosage: 10MG-325MG
     Route: 048
  39. NEURONTIN [Concomitant]
     Route: 048
  40. KEPPRA [Concomitant]
     Route: 065
  41. DURAGESIC [Suspect]
     Route: 062
  42. DURAGESIC [Suspect]
     Route: 062
  43. DURAGESIC [Suspect]
     Route: 062
  44. UNKNOWN MEDICATION [Suspect]
     Indication: ILL-DEFINED DISORDER
     Route: 065
  45. DURAGESIC [Suspect]
     Indication: INTERVERTEBRAL DISC DEGENERATION
     Route: 062
  46. DURAGESIC [Suspect]
     Route: 062
  47. AMLODIPINE BESYLATE [Concomitant]
     Route: 048

REACTIONS (17)
  - DEEP VEIN THROMBOSIS [None]
  - PULMONARY EMBOLISM [None]
  - DEPRESSION [None]
  - GOITRE [None]
  - INSOMNIA [None]
  - DRUG INEFFECTIVE [None]
  - HAEMOGLOBIN DECREASED [None]
  - FEELING ABNORMAL [None]
  - CONTRAST MEDIA REACTION [None]
  - METABOLIC ENCEPHALOPATHY [None]
  - EXPIRED DRUG ADMINISTERED [None]
  - HYPERTENSION [None]
  - ADVERSE DRUG REACTION [None]
  - THYROID DISORDER [None]
  - RESPIRATORY FAILURE [None]
  - NEUROGENIC BLADDER [None]
  - ANXIETY [None]
